FAERS Safety Report 21996448 (Version 2)
Quarter: 2023Q1

REPORT INFORMATION
  Report Type: Spontaneous
  Country: CH (occurrence: None)
  Receive Date: 20230215
  Receipt Date: 20230320
  Transmission Date: 20230418
  Serious: Yes (Life-Threatening, Hospitalization, Other)
  Sender: FDA-Public Use
  Company Number: 2023A037066

PATIENT
  Age: 20 Year
  Sex: Female

DRUGS (5)
  1. TEZSPIRE [Suspect]
     Active Substance: TEZEPELUMAB-EKKO
     Indication: Asthma
     Dates: start: 20220808, end: 20221028
  2. XOLAIR [Concomitant]
     Active Substance: OMALIZUMAB
     Dates: start: 202108, end: 202208
  3. FOSTER [Concomitant]
     Active Substance: BECLOMETHASONE\FORMOTEROL
     Indication: Asthma
     Dosage: 100/6UG, 2-0-2
  4. SPIRIVA RESPIMAT [Concomitant]
     Active Substance: TIOTROPIUM BROMIDE
     Indication: Asthma
     Dosage: 2-0-0
  5. PREDNISOLONE [Concomitant]
     Active Substance: PREDNISOLONE
     Indication: Asthma
     Dosage: VARYING DOSAGE
     Dates: end: 202206

REACTIONS (8)
  - Pleural effusion [Unknown]
  - Ischaemic cerebral infarction [Unknown]
  - Pulmonary infarction [Unknown]
  - Nervous system disorder [Unknown]
  - Pulmonary arterial hypertension [Unknown]
  - Respiratory disorder [Unknown]
  - Condition aggravated [Unknown]
  - Respiratory symptom [Unknown]

NARRATIVE: CASE EVENT DATE: 20221001
